FAERS Safety Report 11301143 (Version 1)
Quarter: 2015Q3

REPORT INFORMATION
  Report Type: Spontaneous
  Country: US (occurrence: US)
  Receive Date: 20150722
  Receipt Date: 20150722
  Transmission Date: 20151125
  Serious: No
  Sender: FDA-Public Use
  Company Number: US-ELI_LILLY_AND_COMPANY-US201104002463

PATIENT
  Age: 62 Year
  Sex: Female
  Weight: 72.56 kg

DRUGS (8)
  1. EVISTA [Suspect]
     Active Substance: RALOXIFENE HYDROCHLORIDE
     Indication: OSTEOPENIA
     Dosage: 60 MG, QD
     Route: 048
     Dates: start: 201010, end: 201104
  2. VITAMIN D [Concomitant]
     Active Substance: CHOLECALCIFEROL
     Dosage: 1000 IU, UNK
  3. EVISTA [Suspect]
     Active Substance: RALOXIFENE HYDROCHLORIDE
     Dosage: 30 MG, QD
  4. ALLEGRA [Concomitant]
     Active Substance: FEXOFENADINE HYDROCHLORIDE
  5. FISH OIL [Concomitant]
     Active Substance: FISH OIL
  6. ACIPHEX [Concomitant]
     Active Substance: RABEPRAZOLE SODIUM
  7. MULTIVITAMIN [Concomitant]
     Active Substance: VITAMINS
  8. CALCIUM [Concomitant]
     Active Substance: CALCIUM
     Dosage: 1200 MG, UNK

REACTIONS (15)
  - Hot flush [Recovering/Resolving]
  - Muscle spasms [Recovered/Resolved]
  - Fall [Recovered/Resolved]
  - Insomnia [Recovering/Resolving]
  - Contusion [Unknown]
  - Plantar fasciitis [Unknown]
  - Wound [Recovered/Resolved with Sequelae]
  - Night sweats [Recovering/Resolving]
  - Erythema [Unknown]
  - Hand fracture [Unknown]
  - Stress fracture [Recovered/Resolved]
  - Wrist fracture [Recovered/Resolved]
  - Nonspecific reaction [Unknown]
  - Intentional product misuse [Unknown]
  - Tenderness [Unknown]
